FAERS Safety Report 4327885-1 (Version None)
Quarter: 2004Q1

REPORT INFORMATION
  Report Type: 
  Country: None (occurrence: None)
  Receive Date: 20040325
  Receipt Date: 20040317
  Transmission Date: 20041129
  Serious: Yes (Other)
  Sender: FDA-Public Use
  Company Number: AU-JNJFOC-20040203501

PATIENT
  Age: 93 Year
  Sex: Female

DRUGS (11)
  1. RISPERDAL [Suspect]
     Dosage: 1.5 MG, IN 1 DAY
  2. LANOXIN-PG (DIGOXIN) TABLETS [Concomitant]
  3. NITROLINGUAL SPRAY (GLYCERYL TRINITRATE) SPRAY [Concomitant]
  4. IKOPREL (NICORANDIL) [Concomitant]
  5. DIDROCAL (DIDRONEL PMO ^NORWICH EATON^) TABLETS [Concomitant]
  6. PLAVIX [Concomitant]
  7. GTN PATCH (GLYCERYL TRINITRATE) PATCH [Concomitant]
  8. BETALOC (METOPROLOL TARTRATE) TABLETS [Concomitant]
  9. LOSEC (OMEPRAZOLE) [Concomitant]
  10. MULTI-VITAMIN (MULTIVITAMINS) TABLETS [Concomitant]
  11. VISCOTEARS (CARBOMER) OPTHALMIC [Concomitant]

REACTIONS (6)
  - BILE DUCT OBSTRUCTION [None]
  - GALLBLADDER DISORDER [None]
  - HEPATITIS [None]
  - HEPATOCELLULAR DAMAGE [None]
  - HEPATOMEGALY [None]
  - LYMPHOPENIA [None]
